FAERS Safety Report 8984040 (Version 1)
Quarter: 2012Q4

REPORT INFORMATION
  Report Type: Spontaneous
  Country: PR (occurrence: None)
  Receive Date: 20121214
  Receipt Date: 20121214
  Transmission Date: 20130627
  Serious: Yes (Hospitalization)
  Sender: FDA-Public Use
  Company Number: COM-000832

PATIENT
  Age: 42 Year
  Sex: Male

DRUGS (1)
  1. DOCUSATE SODIUM [Suspect]
     Indication: CONSTIPATION
     Dosage: softgel, once, orally
     Route: 048
     Dates: start: 20121123, end: 20121123

REACTIONS (2)
  - Hypersensitivity [None]
  - Product contamination physical [None]
